FAERS Safety Report 23950602 (Version 1)
Quarter: 2024Q2

REPORT INFORMATION
  Report Type: Spontaneous
  Country: US (occurrence: US)
  Receive Date: 20240607
  Receipt Date: 20240607
  Transmission Date: 20240716
  Serious: No
  Sender: FDA-Public Use
  Company Number: US-AMGEN-USASP2024110914

PATIENT
  Sex: Male

DRUGS (1)
  1. REPATHA [Suspect]
     Active Substance: EVOLOCUMAB
     Indication: Product used for unknown indication
     Dosage: 140 MILLIGRAM, Q2WK (PATIENT HAD 2 TOTAL DOSES)
     Route: 065

REACTIONS (5)
  - Visual impairment [Unknown]
  - Skin disorder [Unknown]
  - Facial pain [Unknown]
  - Fatigue [Unknown]
  - Stress [Unknown]
